FAERS Safety Report 21664628 (Version 2)
Quarter: 2025Q1

REPORT INFORMATION
  Report Type: Spontaneous
  Country: GB (occurrence: GB)
  Receive Date: 20221130
  Receipt Date: 20250321
  Transmission Date: 20250408
  Serious: Yes (Hospitalization, Other)
  Sender: JOHNSON AND JOHNSON
  Company Number: GB-CELLTRION INC.-2022GB010991

PATIENT
  Age: 40 Year
  Sex: Female

DRUGS (2)
  1. REMICADE [Suspect]
     Active Substance: INFLIXIMAB
     Indication: Colitis ulcerative
     Route: 041
  2. INFLIXIMAB [Suspect]
     Active Substance: INFLIXIMAB
     Indication: Colitis ulcerative
     Route: 058
     Dates: start: 202205

REACTIONS (7)
  - Lupus-like syndrome [Unknown]
  - Ear swelling [Unknown]
  - Arthritis [Unknown]
  - Mass [Unknown]
  - Asthenia [Unknown]
  - Pain [Unknown]
  - Gait disturbance [Unknown]
